FAERS Safety Report 11397379 (Version 1)
Quarter: 2015Q3

REPORT INFORMATION
  Report Type: Spontaneous
  Country: US (occurrence: US)
  Receive Date: 20150819
  Receipt Date: 20150819
  Transmission Date: 20151125
  Serious: No
  Sender: FDA-Public Use
  Company Number: US-MALLINCKRODT-T201502841

PATIENT
  Age: 68 Year
  Sex: Male

DRUGS (4)
  1. CONRAY 43 [Suspect]
     Active Substance: IOTHALAMATE MEGLUMINE
     Indication: CIRCUMCISION
  2. CONRAY 43 [Suspect]
     Active Substance: IOTHALAMATE MEGLUMINE
     Indication: CYSTOSCOPY
     Dosage: 5 ML, SINGLE
     Route: 065
     Dates: start: 20150526, end: 20150526
  3. NORMAL SALINE [Concomitant]
     Active Substance: SODIUM CHLORIDE
     Dosage: 5 ML, SINGLE
  4. LIDOCAINE. [Concomitant]
     Active Substance: LIDOCAINE
     Dosage: 10 ML

REACTIONS (2)
  - Incorrect route of drug administration [Unknown]
  - No adverse event [Unknown]

NARRATIVE: CASE EVENT DATE: 20150526
